FAERS Safety Report 10908563 (Version 1)
Quarter: 2015Q1

REPORT INFORMATION
  Report Type: Report from Study
  Country: DK (occurrence: DK)
  Receive Date: 20150312
  Receipt Date: 20150312
  Transmission Date: 20150721
  Serious: Yes (Death, Other)
  Sender: FDA-Public Use
  Company Number: DK-CELGENE-044-C5013-12022633

PATIENT
  Age: 70 Year
  Sex: Female
  Weight: 48.2 kg

DRUGS (6)
  1. CC-5013 [Suspect]
     Active Substance: LENALIDOMIDE
     Indication: CHRONIC LYMPHOCYTIC LEUKAEMIA
     Route: 048
     Dates: start: 20110516
  2. CC-5013 [Suspect]
     Active Substance: LENALIDOMIDE
     Dosage: 75 MILLIGRAM
     Route: 048
     Dates: start: 20120103, end: 20120116
  3. PARACETAMOL [Concomitant]
     Active Substance: ACETAMINOPHEN
     Indication: PAIN
     Route: 048
     Dates: start: 20120103
  4. UNIKALK [Concomitant]
     Indication: MINERAL SUPPLEMENTATION
  5. UNIKALK [Concomitant]
     Indication: VITAMIN SUPPLEMENTATION
     Dosage: 3000 MILLIGRAM
     Route: 048
     Dates: start: 20111206
  6. ACETYLSALICYLIC ACID [Concomitant]
     Active Substance: ASPIRIN
     Indication: THROMBOSIS PROPHYLAXIS
     Dosage: 1 TABLET
     Route: 048
     Dates: start: 20110913

REACTIONS (1)
  - Lung squamous cell carcinoma stage II [Fatal]

NARRATIVE: CASE EVENT DATE: 20120213
